FAERS Safety Report 4639680-4 (Version None)
Quarter: 2005Q2

REPORT INFORMATION
  Report Type: 
  Country: None (occurrence: None)
  Receive Date: 20050415
  Receipt Date: 20050404
  Transmission Date: 20051028
  Serious: No
  Sender: FDA-Public Use
  Company Number: 05P-167-0296273-00

PATIENT
  Age: 32 Year
  Sex: Male

DRUGS (1)
  1. VALPROATE SODIUM [Suspect]
     Dosage: SEE IMAGE
     Route: 048

REACTIONS (3)
  - ANTICONVULSANT DRUG LEVEL INCREASED [None]
  - CONVULSION [None]
  - DEAFNESS UNILATERAL [None]
